FAERS Safety Report 8193913-9 (Version None)
Quarter: 2012Q1

REPORT INFORMATION
  Report Type: 
  Country: None (occurrence: None)
  Receive Date: 20120308
  Receipt Date: 20120228
  Transmission Date: 20120608
  Serious: Yes (Death, Life-Threatening)
  Sender: FDA-Public Use
  Company Number: NL-CELGENEUS-114-20785-11030260

PATIENT
  Sex: Female
  Weight: 62 kg

DRUGS (5)
  1. THALIDOMIDE [Suspect]
     Indication: MULTIPLE MYELOMA
     Route: 048
     Dates: start: 20110210, end: 20110217
  2. LASIX [Concomitant]
     Indication: OEDEMA
     Route: 048
     Dates: start: 20110201, end: 20110217
  3. MELPHALAN HYDROCHLORIDE [Suspect]
     Indication: MULTIPLE MYELOMA
     Route: 048
     Dates: start: 20110210, end: 20110213
  4. PREDNISONE TAB [Suspect]
     Indication: MULTIPLE MYELOMA
     Route: 048
     Dates: start: 20110210, end: 20110213
  5. ACTRAPID [Concomitant]
     Indication: DIABETES MELLITUS
     Route: 058
     Dates: start: 20110201, end: 20110217

REACTIONS (2)
  - RESPIRATORY FAILURE [None]
  - SEPSIS [None]
